FAERS Safety Report 7432541-7 (Version None)
Quarter: 2011Q2

REPORT INFORMATION
  Report Type: 
  Country: None (occurrence: None)
  Receive Date: 20110422
  Receipt Date: 20110415
  Transmission Date: 20111010
  Serious: Yes (Death)
  Sender: FDA-Public Use
  Company Number: DE-PFIZER INC-2011083088

PATIENT
  Age: 59 Year
  Sex: Male

DRUGS (5)
  1. SIMVASTATIN [Concomitant]
     Dosage: 40 MG, DAILY
  2. METOPROLOL SUCCINATE [Concomitant]
     Dosage: 47.5 MG, DAILY
  3. ARGATRA [Suspect]
     Indication: HEPARIN-INDUCED THROMBOCYTOPENIA
     Dosage: 0.4 MCG/KG/MIN (INITIAL INFUSION) - TITRATED
     Route: 042
     Dates: start: 20110211, end: 20110214
  4. ARGATRA [Suspect]
     Dosage: 0.3 MCG/KG/MIN (INITIAL INFUSION) - ADJUSTED
     Route: 042
     Dates: start: 20110220, end: 20110222
  5. RAMIPRIL [Concomitant]
     Dosage: 5 MG, DAILY

REACTIONS (1)
  - CARDIAC DEATH [None]
